FAERS Safety Report 18717414 (Version 1)
Quarter: 2021Q1

REPORT INFORMATION
  Report Type: Spontaneous
  Country: AR (occurrence: AR)
  Receive Date: 20210108
  Receipt Date: 20210108
  Transmission Date: 20210419
  Serious: Yes (Hospitalization)
  Sender: FDA-Public Use
  Company Number: AR-PFIZER INC-2021007782

PATIENT
  Age: 73 Year
  Sex: Female

DRUGS (2)
  1. IBRANCE [Suspect]
     Active Substance: PALBOCICLIB
     Indication: BREAST CANCER METASTATIC
     Dosage: 125 MG, CYCLIC (DAILY, SCHEME 3X1)
     Dates: start: 20171012
  2. LETROZOL [Concomitant]
     Active Substance: LETROZOLE

REACTIONS (5)
  - Blood potassium decreased [Unknown]
  - Agitation [Unknown]
  - Cardiac failure [Unknown]
  - Pulmonary oedema [Unknown]
  - Dehydration [Unknown]

NARRATIVE: CASE EVENT DATE: 202101
